FAERS Safety Report 16720878 (Version 1)
Quarter: 2019Q3

REPORT INFORMATION
  Report Type: Spontaneous
  Country: CA (occurrence: CA)
  Receive Date: 20190820
  Receipt Date: 20190820
  Transmission Date: 20191005
  Serious: Yes (Hospitalization)
  Sender: FDA-Public Use
  Company Number: CA-MYLANLABS-2019M1076734

PATIENT
  Age: 74 Year
  Sex: Female
  Weight: 104 kg

DRUGS (7)
  1. NIFEDIPINE. [Concomitant]
     Active Substance: NIFEDIPINE
  2. ASA [Concomitant]
     Active Substance: ASPIRIN
  3. MYLAN-ATORVASTATIN [Suspect]
     Active Substance: ATORVASTATIN
     Indication: DYSLIPIDAEMIA
     Dosage: UNK UNK, QD
     Route: 048
  4. VITAMIN D                          /00107901/ [Concomitant]
     Active Substance: ERGOCALCIFEROL
  5. CANDESARTAN HCTZ [Concomitant]
     Active Substance: CANDESARTAN CILEXETIL\HYDROCHLOROTHIAZIDE
  6. RANITIDINE. [Concomitant]
     Active Substance: RANITIDINE
  7. METOPROLOL. [Concomitant]
     Active Substance: METOPROLOL

REACTIONS (10)
  - Oedema peripheral [Recovering/Resolving]
  - Rash [Recovering/Resolving]
  - Blood creatine phosphokinase abnormal [Recovering/Resolving]
  - Muscular weakness [Recovering/Resolving]
  - Rash erythematous [Recovering/Resolving]
  - Eosinophilia [Recovering/Resolving]
  - Blood creatine phosphokinase increased [Recovering/Resolving]
  - Myopathy [Recovering/Resolving]
  - Rash pruritic [Recovering/Resolving]
  - C-reactive protein abnormal [Recovering/Resolving]
